FAERS Safety Report 5868844-7 (Version None)
Quarter: 2008Q3

REPORT INFORMATION
  Report Type: 
  Country: None (occurrence: None)
  Receive Date: 20080903
  Receipt Date: 20080827
  Transmission Date: 20090109
  Serious: Yes (Other)
  Sender: FDA-Public Use
  Company Number: CH-JNJFOC-20071002427

PATIENT
  Sex: Female

DRUGS (4)
  1. DOXORUBICIN HCL [Suspect]
     Indication: BREAST CANCER METASTATIC
     Dosage: 20MG/M2
     Route: 042
  2. AVASTIN [Suspect]
     Indication: BREAST CANCER METASTATIC
     Dosage: 10MG/KG EVERY 2 WEEKS
     Route: 042
  3. NETIUM [Concomitant]
     Route: 048
  4. NETIUM [Concomitant]
     Route: 048

REACTIONS (4)
  - ALVEOLITIS [None]
  - COUGH [None]
  - DYSPNOEA [None]
  - PNEUMONITIS [None]
